FAERS Safety Report 6703728-3 (Version None)
Quarter: 2010Q2

REPORT INFORMATION
  Report Type: 
  Country: None (occurrence: None)
  Receive Date: 20100430
  Receipt Date: 20100429
  Transmission Date: 20101027
  Serious: Yes (Hospitalization, Disabling)
  Sender: FDA-Public Use
  Company Number: DE-SANOFI-AVENTIS-2010SA017453

PATIENT
  Age: 58 Year
  Sex: Female
  Weight: 78 kg

DRUGS (4)
  1. MULTAQ [Suspect]
     Indication: ATRIAL FIBRILLATION
     Route: 048
     Dates: start: 20100201, end: 20100322
  2. LEVOTHYROXINE [Concomitant]
     Indication: HYPOTHYROIDISM
     Route: 048
  3. BISOPROLOL FUMARATE [Concomitant]
     Indication: ATRIAL FIBRILLATION
     Dosage: DOSAGE: 1/2-0-1/2
     Route: 048
  4. PHENPROCOUMON [Concomitant]
     Indication: ATRIAL FIBRILLATION
     Dosage: DOSAGE AFTER INR
     Route: 048

REACTIONS (6)
  - ANGIOEDEMA [None]
  - DERMATITIS BULLOUS [None]
  - ERYTHEMA [None]
  - PHOTODERMATOSIS [None]
  - PRURITUS [None]
  - SKIN BURNING SENSATION [None]
